FAERS Safety Report 13909335 (Version 2)
Quarter: 2017Q3

REPORT INFORMATION
  Report Type: Report from Study
  Country: FR (occurrence: FR)
  Receive Date: 20170828
  Receipt Date: 20170908
  Transmission Date: 20171127
  Serious: Yes (Hospitalization)
  Sender: FDA-Public Use
  Company Number: FR-ROCHE-1968949

PATIENT
  Age: 63 Year
  Sex: Male
  Weight: 86 kg

DRUGS (13)
  1. CICALFATE [Concomitant]
     Route: 050
     Dates: start: 20170703
  2. HALDOL [Concomitant]
     Active Substance: HALOPERIDOL
     Route: 048
     Dates: start: 20170707
  3. LOCAPRED [Concomitant]
     Active Substance: DESONIDE
     Route: 065
     Dates: start: 20170703
  4. AERIUS [Concomitant]
     Active Substance: DESLORATADINE
     Route: 050
     Dates: start: 20170703
  5. VEMURAFENIB. [Suspect]
     Active Substance: VEMURAFENIB
     Indication: ADENOCARCINOMA
     Route: 065
     Dates: start: 20170710
  6. DUROGESIC [Concomitant]
     Active Substance: FENTANYL
     Dosage: PATCH07
     Route: 065
     Dates: start: 20170707
  7. DOLIPRANE [Concomitant]
     Active Substance: ACETAMINOPHEN
     Route: 048
     Dates: start: 20170630, end: 20170707
  8. SEROPLEX [Concomitant]
     Active Substance: ESCITALOPRAM OXALATE
     Route: 048
     Dates: start: 20170703
  9. OXYNORMORO [Concomitant]
     Active Substance: OXYCODONE
     Route: 048
     Dates: start: 20170707
  10. MORPHINE PUMP [Suspect]
     Active Substance: MORPHINE
     Indication: PRODUCT USED FOR UNKNOWN INDICATION
     Route: 065
     Dates: start: 20170710, end: 20170716
  11. NAPROSYNE [Concomitant]
     Active Substance: NAPROXEN
     Route: 048
     Dates: start: 20170630, end: 20170707
  12. VEMURAFENIB. [Suspect]
     Active Substance: VEMURAFENIB
     Indication: BRAF V600E MUTATION POSITIVE
     Dosage: MOST RECENT DOSE ON 09/JUL/2017
     Route: 048
     Dates: start: 20170615
  13. VEMURAFENIB. [Suspect]
     Active Substance: VEMURAFENIB
     Route: 048
     Dates: end: 20170712

REACTIONS (1)
  - Renal failure [Recovered/Resolved]

NARRATIVE: CASE EVENT DATE: 20170712
